FAERS Safety Report 6344509-2 (Version None)
Quarter: 2009Q3

REPORT INFORMATION
  Report Type: 
  Country: None (occurrence: None)
  Receive Date: 20090908
  Receipt Date: 20090825
  Transmission Date: 20100115
  Serious: Yes (Other)
  Sender: FDA-Public Use
  Company Number: US-GENENTECH-289664

PATIENT
  Age: 6 Year

DRUGS (2)
  1. AVASTIN [Suspect]
     Indication: GLIOMA
     Dosage: 10 MG/KG, Q2W
     Route: 065
  2. IRINOTECAN HCL [Suspect]
     Indication: GLIOMA
     Dosage: 125 MG/M2, Q2W
     Route: 065

REACTIONS (1)
  - OBSESSIVE-COMPULSIVE DISORDER [None]
